FAERS Safety Report 9225351 (Version 2)
Quarter: 2013Q2

REPORT INFORMATION
  Report Type: Spontaneous
  Country: IT (occurrence: IT)
  Receive Date: 20130411
  Receipt Date: 20130508
  Transmission Date: 20140414
  Serious: Yes (Death, Hospitalization)
  Sender: FDA-Public Use
  Company Number: IT-ROCHE-1212723

PATIENT
  Age: 86 Year
  Sex: Female
  Weight: 50 kg

DRUGS (2)
  1. ROCEFIN [Suspect]
     Indication: DIVERTICULUM
     Route: 030
     Dates: start: 20130130, end: 20130201
  2. CETIRIZINE DIHYDROCHLORIDE [Concomitant]
     Route: 048
     Dates: start: 20130101, end: 20130202

REACTIONS (1)
  - Toxic epidermal necrolysis [Fatal]
